FAERS Safety Report 5741413-5 (Version None)
Quarter: 2008Q2

REPORT INFORMATION
  Report Type: 
  Country: None (occurrence: None)
  Receive Date: 20080514
  Receipt Date: 20080502
  Transmission Date: 20081010
  Serious: Yes (Disabling)
  Sender: FDA-Public Use
  Company Number: 2008PV000035

PATIENT
  Age: 22 Year
  Sex: Female
  Weight: 45 kg

DRUGS (4)
  1. DEPOCYT (CYTARABINE) (50 MG) [Suspect]
     Indication: ACUTE LYMPHOCYTIC LEUKAEMIA
     Dosage: 50 MG; QOW; INTH
     Route: 037
     Dates: start: 20071107, end: 20080102
  2. FLUDARABINE PHOSPHATE [Concomitant]
  3. CYTARABINE [Concomitant]
  4. MITOXANTRONE [Concomitant]

REACTIONS (12)
  - ACUTE LYMPHOCYTIC LEUKAEMIA [None]
  - BALANCE DISORDER [None]
  - CEREBELLAR ATROPHY [None]
  - CEREBRAL ATROPHY [None]
  - DIZZINESS [None]
  - FACIAL PARESIS [None]
  - HEADACHE [None]
  - INFECTION [None]
  - LOSS OF CONSCIOUSNESS [None]
  - MALIGNANT NEOPLASM PROGRESSION [None]
  - NEUROTOXICITY [None]
  - PETIT MAL EPILEPSY [None]
